FAERS Safety Report 5450973-3 (Version None)
Quarter: 2007Q3

REPORT INFORMATION
  Report Type: 
  Country: None (occurrence: None)
  Receive Date: 20070911
  Receipt Date: 20070904
  Transmission Date: 20080115
  Serious: Yes (Other)
  Sender: FDA-Public Use
  Company Number: TCI2007A04470

PATIENT
  Age: 43 Year
  Sex: Female

DRUGS (4)
  1. LEUPROLIDE ACETATE [Suspect]
     Indication: UTERINE LEIOMYOMA
     Dosage: 1.88 MG (1.88 MG,1 IN 28 D)
     Route: 058
     Dates: start: 20070601
  2. CANDESARTAN CILEXETIL [Concomitant]
  3. CALSLOT (MANIDIPINE HYDROCHLORIDE) [Concomitant]
  4. MERCAZOLE (THIAMAZOLE) [Concomitant]

REACTIONS (2)
  - CONDITION AGGRAVATED [None]
  - HYPERTHYROIDISM [None]
